FAERS Safety Report 21297280 (Version 1)
Quarter: 2022Q3

REPORT INFORMATION
  Report Type: Spontaneous
  Country: US (occurrence: None)
  Receive Date: 20220902
  Receipt Date: 20220902
  Transmission Date: 20221027
  Serious: No
  Sender: FDA-Public Use
  Company Number: None

PATIENT
  Age: 59 Year
  Sex: Female
  Weight: 90.72 kg

DRUGS (2)
  1. RASUVO [Suspect]
     Active Substance: METHOTREXATE SODIUM
     Indication: Psoriatic arthropathy
     Dosage: OTHER QUANTITY : 25MG (0.5ML) ;?FREQUENCY : AS DIRECTED;?INJECT 25MG (0.5ML) SUBCUTANEOUSLY ONCE WEE
     Route: 058
     Dates: start: 202108
  2. RASUVO [Suspect]
     Active Substance: METHOTREXATE SODIUM
     Indication: Psoriatic arthropathy

REACTIONS (2)
  - Cellulitis [None]
  - Nonspecific reaction [None]
